FAERS Safety Report 8248244-5 (Version None)
Quarter: 2012Q1

REPORT INFORMATION
  Report Type: 
  Country: None (occurrence: None)
  Receive Date: 20120330
  Receipt Date: 20120328
  Transmission Date: 20120608
  Serious: Yes (Hospitalization)
  Sender: FDA-Public Use
  Company Number: IT-ROCHE-768343

PATIENT
  Sex: Female
  Weight: 60 kg

DRUGS (1)
  1. XELODA [Suspect]
     Indication: BREAST CANCER
     Dosage: 1250 MG CYCLICAL, DATE OF LAST DOSE PRIOR TO SAE 03 NOV 2010, TEMPORARILY INTERRUPTED.
     Route: 048
     Dates: start: 20100310, end: 20101103

REACTIONS (2)
  - THROMBOCYTOPENIA [None]
  - HAEMOLYTIC ANAEMIA [None]
